FAERS Safety Report 9669247 (Version 1)
Quarter: 2013Q4

REPORT INFORMATION
  Report Type: Spontaneous
  Country: GB (occurrence: None)
  Receive Date: 20131101
  Receipt Date: 20131101
  Transmission Date: 20140711
  Serious: Yes (Disabling, Other)
  Sender: FDA-Public Use
  Company Number: AUR-APL-2013-08960

PATIENT
  Age: 72 Year
  Sex: Female
  Weight: 106 kg

DRUGS (15)
  1. RAMIPRIL [Suspect]
     Indication: HYPERTENSION
     Dosage: 1.25 MG, 1 IN 1 D
     Route: 048
     Dates: start: 20110412
  2. RAMIPRIL [Suspect]
     Indication: HYPERTENSION
     Dosage: 2.5MG, 1 IN 1 D
     Route: 048
     Dates: start: 20110717, end: 20110909
  3. ALENDRONIC ACID (ALENDRONIC ACID) [Concomitant]
  4. CALCEOS (LEKOVIT CA) [Concomitant]
  5. CLOPIDOGREL (CLOPIDOGREL) [Concomitant]
  6. CO-CODAMOL (PANADEINE CO) [Concomitant]
  7. FENTALIS (FENTANYL) [Concomitant]
  8. FLUNISOLIDE (FLUNISOLIDE) [Concomitant]
  9. METRONIDAZOLE (METRONIDAZOLE) [Concomitant]
  10. OMEPRAZOLE (OMEPRAZOLE) [Concomitant]
  11. PREDNISOLONE (PREDNISOLONE) [Concomitant]
  12. QVAR (BECLOMETASONE DIPROPIONATE) [Concomitant]
  13. SEREVENT (SALMETEROL XINAFOATE) [Concomitant]
  14. SIMVASTATIN (SIMVASTATIN) [Concomitant]
  15. VENTOLIN (SALBUTAMOL) [Concomitant]

REACTIONS (15)
  - Headache [None]
  - Cerebrovascular disorder [None]
  - Heart rate increased [None]
  - Hyperhidrosis [None]
  - Cough [None]
  - Dyspnoea [None]
  - Abdominal pain [None]
  - Oral pain [None]
  - Glossodynia [None]
  - Sleep disorder [None]
  - Fatigue [None]
  - Asthenia [None]
  - Diplopia [None]
  - Vision blurred [None]
  - Nerve injury [None]
